FAERS Safety Report 9496186 (Version 1)
Quarter: 2013Q3

REPORT INFORMATION
  Report Type: Other
  Country: JP (occurrence: JP)
  Receive Date: 20130904
  Receipt Date: 20130904
  Transmission Date: 20140515
  Serious: Yes (Hospitalization)
  Sender: FDA-Public Use
  Company Number: JP-BRISTOL-MYERS SQUIBB COMPANY-19215284

PATIENT
  Age: 60 Year
  Sex: Male

DRUGS (1)
  1. PARAPLATIN [Suspect]
     Indication: HYPOPHARYNGEAL CANCER

REACTIONS (6)
  - Pyrexia [Unknown]
  - Febrile neutropenia [Unknown]
  - Platelet count decreased [Unknown]
  - Disseminated intravascular coagulation [Recovering/Resolving]
  - Klebsiella infection [Unknown]
  - Muscle abscess [Recovering/Resolving]
